FAERS Safety Report 16834442 (Version 2)
Quarter: 2019Q4

REPORT INFORMATION
  Report Type: Report from Study
  Country: US (occurrence: US)
  Receive Date: 20190920
  Receipt Date: 20191030
  Transmission Date: 20200122
  Serious: Yes (Other)
  Sender: FDA-Public Use
  Company Number: PHEH2019US038885

PATIENT
  Sex: Male

DRUGS (1)
  1. ENTRESTO [Suspect]
     Active Substance: SACUBITRIL\VALSARTAN
     Indication: CARDIAC FAILURE
     Dosage: UNK
     Route: 048

REACTIONS (5)
  - Sleep apnoea syndrome [Unknown]
  - Dyspnoea [Unknown]
  - Thrombosis [Unknown]
  - Ejection fraction decreased [Unknown]
  - Oxygen consumption decreased [Unknown]
